FAERS Safety Report 16320011 (Version 1)
Quarter: 2019Q2

REPORT INFORMATION
  Report Type: Spontaneous
  Country: US (occurrence: US)
  Receive Date: 20190515
  Receipt Date: 20190515
  Transmission Date: 20190711
  Serious: No
  Sender: FDA-Public Use
  Company Number: None

PATIENT
  Age: 42 Year
  Sex: Female
  Weight: 72 kg

DRUGS (1)
  1. VIVITROL [Suspect]
     Active Substance: NALTREXONE
     Indication: ALCOHOLISM
     Dosage: ?          OTHER FREQUENCY:EVERY MONTH;?
     Route: 030

REACTIONS (3)
  - Injection site warmth [None]
  - Encapsulation reaction [None]
  - Injection site reaction [None]

NARRATIVE: CASE EVENT DATE: 20190510
